FAERS Safety Report 11892778 (Version 7)
Quarter: 2017Q2

REPORT INFORMATION
  Report Type: Spontaneous
  Country: US (occurrence: US)
  Receive Date: 20160106
  Receipt Date: 20170511
  Transmission Date: 20170829
  Serious: No
  Sender: FDA-Public Use
  Company Number: US-PFIZER INC-2015456850

PATIENT
  Age: 62 Year
  Sex: Female
  Weight: 79 kg

DRUGS (5)
  1. LYRICA [Suspect]
     Active Substance: PREGABALIN
     Indication: MIGRAINE
     Dosage: 450 MG, DAILY (3 PILLS DAILY, ALSO REPORTED AS 150 MG TID)
     Route: 048
     Dates: start: 2015
  2. LYRICA [Suspect]
     Active Substance: PREGABALIN
     Indication: PAIN
     Dosage: 750 MG, DAILY (TAKE 2 CAPSULE BY MOUTH TWICE DAILY AND ONE CAPSULE BY MOUTH AT BEDTIME)
     Route: 048
     Dates: start: 20161203
  3. ELAVIL [Concomitant]
     Active Substance: AMITRIPTYLINE HYDROCHLORIDE
     Indication: FIBROMYALGIA
     Dosage: 100 MG, 1X/DAY
     Route: 048
     Dates: start: 2014
  4. LYRICA [Suspect]
     Active Substance: PREGABALIN
     Indication: FIBROMYALGIA
     Dosage: 100 MG, 2X/DAY
     Route: 048
  5. LYRICA [Suspect]
     Active Substance: PREGABALIN
     Indication: NEURALGIA
     Dosage: 150 MG, 2X/DAY
     Route: 048

REACTIONS (5)
  - Blood sodium decreased [Unknown]
  - Drug ineffective [Recovered/Resolved]
  - Withdrawal syndrome [Recovered/Resolved]
  - Prescribed overdose [Unknown]
  - Malaise [Not Recovered/Not Resolved]

NARRATIVE: CASE EVENT DATE: 20161203
